FAERS Safety Report 5640962-8 (Version None)
Quarter: 2008Q1

REPORT INFORMATION
  Report Type: 
  Country: None (occurrence: None)
  Receive Date: 20080227
  Receipt Date: 20080222
  Transmission Date: 20080703
  Serious: Yes (Hospitalization)
  Sender: FDA-Public Use
  Company Number: GB-TEVA-166540ISR

PATIENT
  Age: 36 Year
  Sex: Male

DRUGS (10)
  1. CITALOPRAM HYDROBROMIDE [Suspect]
     Indication: DEPRESSION
  2. ATRACURIUM BESYLATE [Suspect]
     Indication: ENDOTRACHEAL INTUBATION
  3. FENTANYL CITRATE [Suspect]
     Indication: GENERAL ANAESTHESIA
  4. FENTANYL CITRATE [Suspect]
  5. GLYCOPYRRONIUM [Suspect]
     Indication: NEUROMUSCULAR BLOCKADE
  6. ISOFLURANE [Suspect]
     Indication: ANAESTHESIA
  7. KETOROLAC TROMETHAMINE [Suspect]
  8. NEOSTIGMINE [Suspect]
     Indication: NEUROMUSCULAR BLOCKADE
  9. NITROUS OXIDE [Suspect]
     Indication: ANAESTHESIA
  10. THIOPENTONE [Suspect]
     Indication: ANAESTHESIA

REACTIONS (2)
  - COMA [None]
  - CONVERSION DISORDER [None]
